FAERS Safety Report 4701940-6 (Version None)
Quarter: 2005Q2

REPORT INFORMATION
  Report Type: 
  Country: None (occurrence: None)
  Receive Date: 20050628
  Receipt Date: 20041123
  Transmission Date: 20051028
  Serious: Yes (Hospitalization)
  Sender: FDA-Public Use
  Company Number: DE-MERCK-0411DEU00487

PATIENT
  Age: 56 Year
  Sex: Male

DRUGS (5)
  1. VIOXX [Suspect]
     Indication: ARTHROPATHY
     Route: 048
     Dates: start: 20000522, end: 20000101
  2. VIOXX [Suspect]
     Route: 048
     Dates: start: 20040226
  3. VIOXX [Suspect]
     Route: 048
     Dates: start: 20040310
  4. VIOXX [Suspect]
     Route: 048
     Dates: start: 20040819
  5. VIOXX [Suspect]
     Route: 048
     Dates: start: 20040903, end: 20040901

REACTIONS (6)
  - AORTIC VALVE INCOMPETENCE [None]
  - BLOOD PRESSURE INCREASED [None]
  - CARDIOVASCULAR DISORDER [None]
  - DIZZINESS [None]
  - HYPERHIDROSIS [None]
  - NAUSEA [None]
